FAERS Safety Report 19406754 (Version 2)
Quarter: 2021Q2

REPORT INFORMATION
  Report Type: Spontaneous
  Country: US (occurrence: US)
  Receive Date: 20210611
  Receipt Date: 20210615
  Transmission Date: 20210717
  Serious: No
  Sender: FDA-Public Use
  Company Number: NVSC2021US125372

PATIENT
  Sex: Male

DRUGS (2)
  1. PHENTERMINE HYDROCHLORIDE CAPSULES USP [Suspect]
     Active Substance: PHENTERMINE HYDROCHLORIDE
     Indication: PRODUCT USED FOR UNKNOWN INDICATION
     Dosage: UNK
     Route: 065
     Dates: start: 2016, end: 2019
  2. MIRALAX [Concomitant]
     Active Substance: POLYETHYLENE GLYCOL 3350
     Indication: ABNORMAL FAECES
     Dosage: UNK
     Route: 065

REACTIONS (7)
  - Euphoric mood [Unknown]
  - Weight increased [Unknown]
  - Weight decreased [Unknown]
  - Illness [Unknown]
  - Oedema peripheral [Recovered/Resolved]
  - Sleep disorder [Unknown]
  - Fracture [Unknown]
